FAERS Safety Report 20069262 (Version 1)
Quarter: 2021Q4

REPORT INFORMATION
  Report Type: Spontaneous
  Country: US (occurrence: None)
  Receive Date: 20211112
  Receipt Date: 20211112
  Transmission Date: 20220303
  Serious: No
  Sender: FDA-Public Use
  Company Number: None

PATIENT
  Age: 77 Year
  Sex: Male

DRUGS (1)
  1. WARFARIN SODIUM [Suspect]
     Active Substance: WARFARIN SODIUM
     Indication: Atrial fibrillation
     Dosage: FREQUENCY : WEEKLY;?
     Route: 048
     Dates: start: 20070404

REACTIONS (7)
  - Frequent bowel movements [None]
  - Faeces discoloured [None]
  - International normalised ratio increased [None]
  - Haemoglobin decreased [None]
  - Diverticulum [None]
  - Polyp [None]
  - Haemorrhage [None]

NARRATIVE: CASE EVENT DATE: 20210817
